FAERS Safety Report 11894117 (Version 1)
Quarter: 2016Q1

REPORT INFORMATION
  Report Type: Spontaneous
  Country: GB (occurrence: GB)
  Receive Date: 20160107
  Receipt Date: 20160107
  Transmission Date: 20160526
  Serious: Yes (Hospitalization)
  Sender: FDA-Public Use
  Company Number: US-ASTRAZENECA-2016SE00778

PATIENT
  Age: 2 Month
  Sex: Male
  Weight: 3.9 kg

DRUGS (5)
  1. SYNAGIS [Suspect]
     Active Substance: PALIVIZUMAB
     Indication: ANTIVIRAL PROPHYLAXIS
     Route: 030
     Dates: start: 20151112
  2. SPIRONOLACTONE. [Concomitant]
     Active Substance: SPIRONOLACTONE
     Indication: PRODUCT USED FOR UNKNOWN INDICATION
  3. CHLOROTHIAZIDE. [Concomitant]
     Active Substance: CHLOROTHIAZIDE
     Indication: PRODUCT USED FOR UNKNOWN INDICATION
  4. ABIDEC [Concomitant]
     Indication: PRODUCT USED FOR UNKNOWN INDICATION
  5. SYTRON [Concomitant]
     Indication: PRODUCT USED FOR UNKNOWN INDICATION

REACTIONS (3)
  - Dyspnoea [Recovered/Resolved]
  - Poor feeding infant [Recovered/Resolved]
  - Respiratory syncytial virus bronchiolitis [Recovered/Resolved]

NARRATIVE: CASE EVENT DATE: 20151207
